FAERS Safety Report 12647378 (Version 4)
Quarter: 2016Q4

REPORT INFORMATION
  Report Type: Report from Study
  Country: FR (occurrence: FR)
  Receive Date: 20160812
  Receipt Date: 20161014
  Transmission Date: 20170207
  Serious: Yes (Other)
  Sender: FDA-Public Use
  Company Number: PHHY2016FR081429

PATIENT
  Age: 67 Year
  Sex: Male

DRUGS (10)
  1. TASIGNA [Suspect]
     Active Substance: NILOTINIB
     Indication: CHRONIC MYELOID LEUKAEMIA
     Dosage: 600 MG, QD
     Route: 048
     Dates: start: 20101202, end: 20150806
  2. KARDEGIC [Concomitant]
     Active Substance: ASPIRIN LYSINE
     Indication: ARTERIOSCLEROSIS
     Dosage: 75 MG, QD
     Route: 065
     Dates: start: 20110301
  3. FLUDEX [Concomitant]
     Active Substance: INDAPAMIDE
     Indication: HYPERTENSION
     Dosage: 1.5 MG, QD
     Route: 065
     Dates: start: 2011
  4. DASATINIB [Concomitant]
     Active Substance: DASATINIB
     Indication: CHRONIC MYELOID LEUKAEMIA
     Dosage: 100 MG, QD
     Route: 048
     Dates: start: 20150807
  5. ATORVASTATIN [Concomitant]
     Active Substance: ATORVASTATIN
     Indication: DYSLIPIDAEMIA
     Dosage: 80 MG, QD
     Route: 048
     Dates: start: 201507
  6. PRAVASTATIN. [Concomitant]
     Active Substance: PRAVASTATIN
     Indication: ARTERIOSCLEROSIS
     Dosage: 20 MG, QD
     Route: 065
     Dates: start: 20110301
  7. TANGANIL [Concomitant]
     Active Substance: ACETYLLEUCINE
     Indication: PRODUCT USED FOR UNKNOWN INDICATION
     Dosage: UNK
     Route: 065
  8. CLOPIDOGREL [Concomitant]
     Active Substance: CLOPIDOGREL BISULFATE
     Indication: THROMBOSIS PROPHYLAXIS
     Dosage: 75 MG, QD
     Route: 048
     Dates: start: 201507
  9. COVERSYL                                /BEL/ [Concomitant]
     Active Substance: PERINDOPRIL ARGININE
     Indication: CARDIOVASCULAR EVENT PROPHYLAXIS
     Dosage: 2.5 MG, QD
     Route: 065
     Dates: start: 20110301
  10. OXYCODONE [Concomitant]
     Active Substance: OXYCODONE
     Indication: PAIN
     Dosage: 5 MG, QD
     Route: 048
     Dates: start: 20160113

REACTIONS (4)
  - Spondylitis [Unknown]
  - Lung disorder [Unknown]
  - Lung infection [Recovered/Resolved]
  - Cervical spinal stenosis [Unknown]

NARRATIVE: CASE EVENT DATE: 201507
